FAERS Safety Report 20036753 (Version 1)
Quarter: 2021Q4

REPORT INFORMATION
  Report Type: Spontaneous
  Country: BR (occurrence: BR)
  Receive Date: 20211105
  Receipt Date: 20211105
  Transmission Date: 20220304
  Serious: Yes (Other)
  Sender: FDA-Public Use
  Company Number: BR-NEBO-PC007629

PATIENT
  Age: 19 Year
  Sex: Male

DRUGS (1)
  1. IRON ISOMALTOSIDE 1000 [Suspect]
     Active Substance: IRON ISOMALTOSIDE 1000
     Indication: Product used for unknown indication
     Route: 065
     Dates: start: 20211004

REACTIONS (2)
  - Skin plaque [Unknown]
  - Rash [Unknown]

NARRATIVE: CASE EVENT DATE: 20211004
